FAERS Safety Report 9322403 (Version 1)
Quarter: 2013Q2

REPORT INFORMATION
  Report Type: Spontaneous
  Country: US (occurrence: US)
  Receive Date: 20130531
  Receipt Date: 20130531
  Transmission Date: 20140414
  Serious: Yes (Other)
  Sender: FDA-Public Use
  Company Number: CHPA2012US025345

PATIENT
  Sex: 0

DRUGS (1)
  1. EXCEDRIN EXTRA STRENGTH [Suspect]
     Indication: HEADACHE
     Dosage: 1 DF, UNK
     Route: 048

REACTIONS (3)
  - Headache [Not Recovered/Not Resolved]
  - Disease recurrence [Not Recovered/Not Resolved]
  - Underdose [Unknown]
